FAERS Safety Report 6744470-2 (Version None)
Quarter: 2010Q2

REPORT INFORMATION
  Report Type: 
  Country: None (occurrence: None)
  Receive Date: 20100527
  Receipt Date: 20100524
  Transmission Date: 20101027
  Serious: Yes (Hospitalization)
  Sender: FDA-Public Use
  Company Number: IT-BRISTOL-MYERS SQUIBB COMPANY-15045198

PATIENT
  Age: 51 Year
  Sex: Male

DRUGS (15)
  1. VEPESID [Suspect]
     Indication: NON-HODGKIN'S LYMPHOMA
     Route: 042
     Dates: start: 20100109, end: 20100112
  2. BICNU [Suspect]
     Indication: NON-HODGKIN'S LYMPHOMA
     Route: 042
     Dates: start: 20100108
  3. CYTARABINE [Suspect]
     Indication: NON-HODGKIN'S LYMPHOMA
     Dosage: ARACYTIN 500MG/10ML POWDER AND SOLVENT FOR INJECTABLE SOLUTION,
     Route: 042
     Dates: start: 20100109, end: 20100112
  4. ALKERAN [Suspect]
     Indication: NON-HODGKIN'S LYMPHOMA
     Dosage: ALKERAN 50MG/10ML POWDER AND SOLVENT FOR INJECTABLE SOLUTION
     Route: 042
     Dates: start: 20100113
  5. ZOVIRAX [Concomitant]
     Dosage: 400 MG ORAL TABS
     Route: 048
  6. ISENTRESS [Concomitant]
     Dosage: 400 MG FILM COATED ORAL TABS
     Route: 048
  7. NORVIR [Concomitant]
     Dosage: 100 MG SOFT ORAL CAPS
     Route: 048
  8. PREZISTA [Concomitant]
     Dosage: 300 MG FILM COATED ORAL TABS
     Route: 048
  9. CELSENTRI [Concomitant]
     Dosage: 150MG FILM COATED ORAL TABS
     Route: 048
  10. DIFLUCAN [Concomitant]
     Dosage: DIFLUCAN 100 MG ORAL CAPS
     Route: 048
  11. BACTRIM [Concomitant]
     Dosage: BACTRIM 160MG+800MG SOLUBLE TABS
  12. KCL RETARD [Concomitant]
     Dosage: KCL RETARD 600MG PROLONGED RELEASE ORAL TABS
     Route: 048
  13. CONTRAMAL [Concomitant]
     Dosage: CONTRAMAL 100MG/ML ORAL DROPS SOLUTION;
     Route: 048
  14. LEVOXACIN [Concomitant]
     Dosage: LEVOXACIN 500 MG FILM COATED ORAL TABS
     Route: 048
  15. SPORANOX [Concomitant]
     Dosage: SPORANOX 10MG/ML ORAL SOLUTION
     Route: 048

REACTIONS (2)
  - MALAISE [None]
  - STOMATITIS [None]
